FAERS Safety Report 12804082 (Version 1)
Quarter: 2016Q4

REPORT INFORMATION
  Report Type: Spontaneous
  Country: US (occurrence: US)
  Receive Date: 20161003
  Receipt Date: 20161003
  Transmission Date: 20170207
  Serious: Yes (Other)
  Sender: FDA-Public Use
  Company Number: US-SA-2016SA180047

PATIENT
  Age: 65 Year
  Sex: Female

DRUGS (4)
  1. WELCHOL [Suspect]
     Active Substance: COLESEVELAM HYDROCHLORIDE
     Indication: TYPE IIA HYPERLIPIDAEMIA
     Route: 065
     Dates: start: 2015
  2. ALIROCUMAB PREFILLED PEN [Concomitant]
     Active Substance: ALIROCUMAB
     Dates: start: 2015
  3. PRALUENT [Suspect]
     Active Substance: ALIROCUMAB
     Indication: TYPE IIA HYPERLIPIDAEMIA
     Route: 065
     Dates: start: 2015
  4. PITAVASTATIN [Suspect]
     Active Substance: PITAVASTATIN
     Indication: TYPE IIA HYPERLIPIDAEMIA
     Route: 065
     Dates: start: 2015

REACTIONS (3)
  - Platelet count decreased [Unknown]
  - Crohn^s disease [Unknown]
  - Immune thrombocytopenic purpura [Unknown]

NARRATIVE: CASE EVENT DATE: 201601
